FAERS Safety Report 4924495-X (Version None)
Quarter: 2006Q1

REPORT INFORMATION
  Report Type: 
  Country: None (occurrence: None)
  Receive Date: 20060227
  Receipt Date: 20060216
  Transmission Date: 20060701
  Serious: Yes (Other)
  Sender: FDA-Public Use
  Company Number: GB-AVENTIS-200611485GDDC

PATIENT
  Age: 22 Year
  Sex: Female

DRUGS (1)
  1. LANTUS [Suspect]
     Indication: BLOOD GLUCOSE INCREASED
     Route: 058

REACTIONS (4)
  - ANOREXIA [None]
  - CONVULSION [None]
  - DRUG EXPOSURE DURING PREGNANCY [None]
  - HYPOGLYCAEMIA UNAWARENESS [None]
